FAERS Safety Report 7266931-2 (Version None)
Quarter: 2011Q1

REPORT INFORMATION
  Report Type: 
  Country: None (occurrence: None)
  Receive Date: 20110121
  Receipt Date: 20110110
  Transmission Date: 20110831
  Serious: Yes (Hospitalization)
  Sender: FDA-Public Use
  Company Number: 025308

PATIENT
  Sex: Female
  Weight: 42.6381 kg

DRUGS (1)
  1. CIMZIA [Suspect]
     Dosage: SUBCUTANEOUS
     Route: 058

REACTIONS (3)
  - PREGNANCY [None]
  - WEIGHT DECREASED [None]
  - DRUG EXPOSURE DURING PREGNANCY [None]
